FAERS Safety Report 9018919 (Version 1)
Quarter: 2013Q1

REPORT INFORMATION
  Report Type: Spontaneous
  Country: US (occurrence: US)
  Receive Date: 20130118
  Receipt Date: 20130118
  Transmission Date: 20140127
  Serious: Yes (Other)
  Sender: FDA-Public Use
  Company Number: CHPA2013US000737

PATIENT
  Age: 72 Year
  Sex: Female

DRUGS (1)
  1. EXCEDRIN EXTRA STRENGTH [Suspect]
     Indication: PROCEDURAL PAIN
     Dosage: 1 DF,  ALMOST DAILY
     Route: 048
     Dates: start: 1987

REACTIONS (13)
  - Lung adenocarcinoma stage I [Recovered/Resolved]
  - Vitreous disorder [Not Recovered/Not Resolved]
  - Loss of consciousness [Recovered/Resolved]
  - Hypertension [Recovered/Resolved]
  - Blood cholesterol increased [Not Recovered/Not Resolved]
  - Cataract [Not Recovered/Not Resolved]
  - Diplopia [Not Recovered/Not Resolved]
  - Fracture [Recovered/Resolved]
  - Blood iron decreased [Recovered/Resolved]
  - Drug interaction [Unknown]
  - Fall [Recovered/Resolved]
  - Constipation [Recovered/Resolved]
  - Underdose [Unknown]
